FAERS Safety Report 4831999-7 (Version None)
Quarter: 2005Q4

REPORT INFORMATION
  Report Type: 
  Country: None (occurrence: None)
  Receive Date: 20051118
  Receipt Date: 20051110
  Transmission Date: 20060501
  Serious: Yes (Life-Threatening, Other)
  Sender: FDA-Public Use
  Company Number: US-JNJFOC-20041207258

PATIENT
  Sex: Female

DRUGS (5)
  1. HALDOL [Suspect]
     Indication: DEPRESSION
     Dosage: (A HANDFUL)
     Route: 065
  2. RIBAVIRIN [Suspect]
     Indication: HEPATITIS C
     Route: 065
  3. PEGINTERFERON ALFA-2B [Suspect]
     Indication: HEPATITIS C
     Route: 058
  4. FLONASE [Concomitant]
  5. ZANTAC [Concomitant]

REACTIONS (4)
  - DEPRESSION [None]
  - DRUG INTERACTION [None]
  - INTENTIONAL OVERDOSE [None]
  - SUICIDE ATTEMPT [None]
